FAERS Safety Report 8513409-1 (Version None)
Quarter: 2012Q3

REPORT INFORMATION
  Report Type: 
  Country: None (occurrence: None)
  Receive Date: 20120717
  Receipt Date: 20120705
  Transmission Date: 20120928
  Serious: Yes (Hospitalization)
  Sender: FDA-Public Use
  Company Number: US-BIOGENIDEC-2012BI021467

PATIENT
  Age: 63 Year
  Sex: Female

DRUGS (1)
  1. TYSABRI [Suspect]
     Indication: MULTIPLE SCLEROSIS
     Route: 042
     Dates: start: 20080610, end: 20120418

REACTIONS (4)
  - HYSTEROSALPINGO-OOPHORECTOMY [None]
  - PELVIC ABSCESS [None]
  - PYELONEPHRITIS [None]
  - UTERINE FISTULA [None]
